FAERS Safety Report 7944067-2 (Version None)
Quarter: 2011Q4

REPORT INFORMATION
  Report Type: 
  Country: None (occurrence: None)
  Receive Date: 20111128
  Receipt Date: 20111115
  Transmission Date: 20120403
  Serious: Yes (Hospitalization, Other)
  Sender: FDA-Public Use
  Company Number: US-ASTRAZENECA-2010SE38321

PATIENT
  Age: 86 Year
  Sex: Male
  Weight: 73.5 kg

DRUGS (11)
  1. LISINOPRIL [Concomitant]
     Route: 048
  2. LOVASTATIN [Suspect]
     Route: 065
  3. CARVEDILOL [Concomitant]
  4. METFORMIN HCL [Concomitant]
  5. ISOSORBIDE DINITRATE [Concomitant]
  6. BUPROPION HCL [Concomitant]
  7. SEROQUEL [Suspect]
     Indication: MENTAL DISORDER
     Route: 048
  8. NIACIN [Concomitant]
  9. TRAZODONE HCL [Suspect]
     Route: 065
  10. LEXAPRO [Concomitant]
  11. ROPINIROLE HYDROCHLORIDE [Concomitant]

REACTIONS (8)
  - INSOMNIA [None]
  - DEMENTIA [None]
  - RENAL FAILURE ACUTE [None]
  - RENAL DISORDER [None]
  - MALAISE [None]
  - DRUG DOSE OMISSION [None]
  - DEPRESSED MOOD [None]
  - NERVOUSNESS [None]
